FAERS Safety Report 10262069 (Version 1)
Quarter: 2014Q2

REPORT INFORMATION
  Report Type: Spontaneous
  Country: US (occurrence: None)
  Receive Date: 20140624
  Receipt Date: 20140624
  Transmission Date: 20141212
  Serious: Yes (Hospitalization)
  Sender: FDA-Public Use
  Company Number: None

PATIENT
  Age: 92 Year
  Sex: Male
  Weight: 73.1 kg

DRUGS (2)
  1. CEFEPIME [Suspect]
     Indication: PNEUMONIA
     Route: 042
     Dates: start: 20140608, end: 20140610
  2. CEFEPIME [Suspect]
     Indication: URINARY TRACT INFECTION
     Route: 042
     Dates: start: 20140608, end: 20140610

REACTIONS (1)
  - Rash [None]
